FAERS Safety Report 17554378 (Version 1)
Quarter: 2020Q1

REPORT INFORMATION
  Report Type: Spontaneous
  Country: CN (occurrence: CN)
  Receive Date: 20200318
  Receipt Date: 20200318
  Transmission Date: 20200409
  Serious: Yes (Hospitalization, Other)
  Sender: FDA-Public Use
  Company Number: CN-ROCHE-2563129

PATIENT
  Age: 43 Year
  Sex: Female

DRUGS (7)
  1. CAPECITABINE. [Concomitant]
     Active Substance: CAPECITABINE
     Route: 048
  2. PERJETA [Suspect]
     Active Substance: PERTUZUMAB
     Route: 065
  3. PYROTINIB MALEATE [Concomitant]
     Indication: INVASIVE DUCTAL BREAST CARCINOMA
     Route: 065
     Dates: start: 20160930
  4. DOCETAXEL. [Concomitant]
     Active Substance: DOCETAXEL
     Indication: INVASIVE DUCTAL BREAST CARCINOMA
     Route: 065
     Dates: start: 20160930
  5. PERJETA [Suspect]
     Active Substance: PERTUZUMAB
     Indication: INVASIVE DUCTAL BREAST CARCINOMA
     Route: 065
     Dates: start: 20160930
  6. HERCEPTIN [Suspect]
     Active Substance: TRASTUZUMAB
     Indication: INVASIVE DUCTAL BREAST CARCINOMA
     Route: 065
     Dates: start: 20160930
  7. HERCEPTIN [Suspect]
     Active Substance: TRASTUZUMAB
     Route: 065

REACTIONS (11)
  - Gastrointestinal disorder [Unknown]
  - Hepatic mass [Unknown]
  - Bone disorder [Unknown]
  - Lung hypoinflation [Unknown]
  - Pericardial effusion [Unknown]
  - Dyspnoea [Unknown]
  - Pneumonitis [Unknown]
  - Lymphadenopathy [Unknown]
  - Spinal disorder [Unknown]
  - Superior vena cava syndrome [Unknown]
  - Pleural effusion [Unknown]

NARRATIVE: CASE EVENT DATE: 20200228
